FAERS Safety Report 15683811 (Version 1)
Quarter: 2018Q4

REPORT INFORMATION
  Report Type: Spontaneous
  Country: FR (occurrence: FR)
  Receive Date: 20181204
  Receipt Date: 20181204
  Transmission Date: 20190205
  Serious: Yes (Death, Other)
  Sender: FDA-Public Use
  Company Number: FR-ROCHE-2223362

PATIENT
  Age: 86 Year
  Sex: Male

DRUGS (6)
  1. MORPHINE LAVOISIER [Suspect]
     Active Substance: MORPHINE HYDROCHLORIDE
     Indication: PAIN
     Route: 042
     Dates: start: 20181008, end: 20181012
  2. LEVETIRACETAM MYLAN [Suspect]
     Active Substance: LEVETIRACETAM
     Indication: EPILEPSY
     Dosage: 100 MG/ML
     Route: 042
     Dates: start: 20181007, end: 20181012
  3. RIVOTRIL [Suspect]
     Active Substance: CLONAZEPAM
     Indication: EPILEPSY
     Dosage: 1 MG/1 ML
     Route: 042
     Dates: start: 20181008, end: 20181012
  4. CEFOTAXIME [Suspect]
     Active Substance: CEFOTAXIME SODIUM
     Indication: INFECTION
     Route: 042
     Dates: start: 20181007, end: 20181012
  5. PARACETAMOL [Concomitant]
     Active Substance: ACETAMINOPHEN
     Indication: PAIN
     Route: 065
     Dates: end: 20181012
  6. SCOPODERM TTS [Concomitant]
     Active Substance: SCOPOLAMINE
     Indication: PALLIATIVE CARE
     Dosage: 1 MG/72 HEURES
     Route: 003

REACTIONS (2)
  - Dermatitis bullous [Not Recovered/Not Resolved]
  - Skin erosion [Not Recovered/Not Resolved]

NARRATIVE: CASE EVENT DATE: 20181011
